FAERS Safety Report 10412629 (Version 1)
Quarter: 2014Q3

REPORT INFORMATION
  Report Type: Spontaneous
  Country: DE (occurrence: DE)
  Receive Date: 20140827
  Receipt Date: 20140827
  Transmission Date: 20150326
  Serious: Yes (Death, Hospitalization)
  Sender: FDA-Public Use
  Company Number: PHHY2014DE106179

PATIENT
  Age: 62 Year
  Sex: Female

DRUGS (1)
  1. HEPARIN [Suspect]
     Active Substance: HEPARIN SODIUM

REACTIONS (4)
  - Death [Fatal]
  - Procedural haemorrhage [Unknown]
  - Mucosal haemorrhage [Unknown]
  - Heparin-induced thrombocytopenia [Recovered/Resolved]
